FAERS Safety Report 5015402-2 (Version None)
Quarter: 2006Q2

REPORT INFORMATION
  Report Type: 
  Country: None (occurrence: None)
  Receive Date: 20060530
  Receipt Date: 20060530
  Transmission Date: 20061013
  Serious: Yes (Other)
  Sender: FDA-Public Use
  Company Number: None

PATIENT
  Age: 53 Year
  Sex: Male
  Weight: 124.1 kg

DRUGS (1)
  1. LOPRESSOR [Suspect]

REACTIONS (1)
  - DEPRESSION [None]
